FAERS Safety Report 21212725 (Version 1)
Quarter: 2022Q3

REPORT INFORMATION
  Report Type: Spontaneous
  Country: US (occurrence: None)
  Receive Date: 20220813
  Receipt Date: 20220813
  Transmission Date: 20221026
  Serious: Yes (Hospitalization)
  Sender: FDA-Public Use
  Company Number: None

PATIENT
  Age: 80 Year
  Sex: Female
  Weight: 68.49 kg

DRUGS (18)
  1. CAPECITABINE [Suspect]
     Active Substance: CAPECITABINE
     Indication: Gallbladder cancer
     Dosage: FREQUENCY : TWICE A DAY;?
     Route: 048
     Dates: start: 20220223
  2. ASPIRIN [Concomitant]
     Active Substance: ASPIRIN
  3. ATORVASTATIN [Concomitant]
     Active Substance: ATORVASTATIN
  4. COZAAR [Concomitant]
  5. CYANOCOBALAMIN [Concomitant]
  6. HYDROCORTISONE [Concomitant]
  7. KEFLEX [Concomitant]
  8. LASIX [Concomitant]
     Active Substance: FUROSEMIDE
  9. LEXAPRO [Concomitant]
     Active Substance: ESCITALOPRAM OXALATE
  10. LYSINE [Concomitant]
  11. MANNXTRA [Concomitant]
  12. MELATONIN [Concomitant]
     Active Substance: MELATONIN
  13. METAMUCIL [Concomitant]
     Active Substance: PLANTAGO SEED
  14. VITAMINS [Concomitant]
     Active Substance: VITAMINS
  15. NORVASC [Concomitant]
  16. OMEGA 3 [Concomitant]
  17. POTASSIUM CHLORIDE [Concomitant]
  18. PROBIOTIC [Concomitant]

REACTIONS (1)
  - Gallbladder operation [None]
